FAERS Safety Report 8890447 (Version 1)
Quarter: 2012Q4

REPORT INFORMATION
  Report Type: 
  Country: TR (occurrence: TR)
  Receive Date: 20121107
  Receipt Date: 20121107
  Transmission Date: 20130627
  Serious: Yes (Death, Other)
  Sender: FDA-Public Use
  Company Number: TR-ACCORD-015133

PATIENT

DRUGS (5)
  1. DOCETAXEL [Suspect]
     Indication: ADENOCARCINOMA GASTRIC
     Dosage: On day 1
     Route: 042
  2. FLUOROURACIL [Suspect]
     Indication: ADENOCARCINOMA GASTRIC
     Dosage: 400 mg/m2 IV bolus, and 2,400 mg/m2 IV over 46 hrs.
     Route: 042
  3. CISPLATIN [Suspect]
     Indication: ADENOCARCINOMA GASTRIC
     Dosage: IV with hydration on day 1
     Route: 042
  4. LEUCOVORIN [Concomitant]
     Indication: ADENOCARCINOMA GASTRIC
     Dosage: IV over 2 h on day 1
     Route: 042
  5. G-CSF [Concomitant]
     Indication: PROPHYLAXIS
     Dosage: on days 3,4,5,6 and 7
     Route: 058

REACTIONS (3)
  - Pneumonia [Fatal]
  - Neutropenia [Unknown]
  - Off label use [Unknown]
